FAERS Safety Report 16908103 (Version 1)
Quarter: 2019Q4

REPORT INFORMATION
  Report Type: Spontaneous
  Country: US (occurrence: US)
  Receive Date: 20191011
  Receipt Date: 20191011
  Transmission Date: 20200122
  Serious: Yes (Death, Hospitalization)
  Sender: FDA-Public Use
  Company Number: US-ROCHE-2434907

PATIENT
  Sex: Female
  Weight: 61.29 kg

DRUGS (4)
  1. VALCYTE [Suspect]
     Active Substance: VALGANCICLOVIR HYDROCHLORIDE
     Indication: LUNG TRANSPLANT
     Dosage: TOOK IT MONDAY, WEDNESDAY, AND FRIDAY ;ONGOING: NO
     Route: 048
     Dates: start: 20060101
  2. PROGRAF [Concomitant]
     Active Substance: TACROLIMUS
     Dosage: 0.5 MG TWICE A DAY  THE DOSAGES WOULD VARY ;ONGOING: NO
     Route: 048
     Dates: start: 20060101
  3. PROGRAF [Concomitant]
     Active Substance: TACROLIMUS
     Indication: LUNG TRANSPLANT
     Dosage: 1 MG TWICE A DAY BUT THE DOSAGES WOULD VARY ;ONGOING: NO
     Route: 048
     Dates: start: 20060101
  4. PROGRAF [Concomitant]
     Active Substance: TACROLIMUS
     Dosage: 1.5 MG TWICE A DAY BUT DOSAGES WOULD VARY ;ONGOING: NO
     Route: 048
     Dates: start: 20060101

REACTIONS (5)
  - Malignant melanoma [Fatal]
  - Transplant rejection [Unknown]
  - Off label use [Unknown]
  - Diverticulitis [Fatal]
  - Intentional product use issue [Unknown]
